FAERS Safety Report 7148744-5 (Version None)
Quarter: 2010Q4

REPORT INFORMATION
  Report Type: 
  Country: None (occurrence: None)
  Receive Date: 20101209
  Receipt Date: 20101201
  Transmission Date: 20110411
  Serious: Yes (Hospitalization)
  Sender: FDA-Public Use
  Company Number: DE-ROCHE-745641

PATIENT
  Sex: Female
  Weight: 162 kg

DRUGS (2)
  1. BEVACIZUMAB [Suspect]
     Route: 065
  2. CAPECITABINE [Suspect]
     Route: 065

REACTIONS (1)
  - VERTIGO [None]
